FAERS Safety Report 18505344 (Version 1)
Quarter: 2020Q4

REPORT INFORMATION
  Report Type: Report from Study
  Country: FR (occurrence: FR)
  Receive Date: 20201116
  Receipt Date: 20201116
  Transmission Date: 20210114
  Serious: Yes (Other)
  Sender: FDA-Public Use
  Company Number: FR-EMD SERONO-9169918

PATIENT
  Age: 66 Year
  Sex: Male
  Weight: 75 kg

DRUGS (15)
  1. AVELUMAB [Suspect]
     Active Substance: AVELUMAB
     Dosage: 780 MG
     Dates: start: 20191219, end: 20191219
  2. AVELUMAB [Suspect]
     Active Substance: AVELUMAB
     Dosage: 770 MG
     Dates: start: 20200103, end: 20200103
  3. ATORVASTATINE                      /01326101/ [Concomitant]
     Active Substance: ATORVASTATIN
     Indication: HYPERCHOLESTEROLAEMIA
     Route: 048
  4. AVELUMAB [Suspect]
     Active Substance: AVELUMAB
     Dosage: 760 MG
     Dates: start: 20200117, end: 20200212
  5. CETUXIMAB. [Suspect]
     Active Substance: CETUXIMAB
     Dosage: 515 MG
     Dates: start: 20191211
  6. DUROGESIC [Concomitant]
     Active Substance: FENTANYL
     Indication: PAIN
     Dosage: 37 UG/HOUR FOR 72 HOURS
     Route: 062
     Dates: start: 20191224
  7. SERESTA [Concomitant]
     Active Substance: OXAZEPAM
     Indication: ANXIETY
     Route: 048
  8. AMLODIPINE [Concomitant]
     Active Substance: AMLODIPINE BESYLATE
     Indication: HYPERTENSION
     Route: 048
  9. CETUXIMAB. [Suspect]
     Active Substance: CETUXIMAB
     Dosage: 510 MG
     Dates: start: 20200124
  10. KERLONE [Concomitant]
     Active Substance: BETAXOLOL HYDROCHLORIDE
     Indication: HYPERTENSION
     Route: 048
  11. ACTISKENAN [Concomitant]
     Active Substance: MORPHINE SULFATE
     Indication: PAIN
     Route: 048
     Dates: start: 20191224
  12. AVELUMAB [Suspect]
     Active Substance: AVELUMAB
     Indication: OROPHARYNGEAL SQUAMOUS CELL CARCINOMA
     Dosage: 790 MG
     Dates: start: 20191204, end: 20191204
  13. CETUXIMAB. [Suspect]
     Active Substance: CETUXIMAB
     Indication: OROPHARYNGEAL SQUAMOUS CELL CARCINOMA
     Dosage: 825 MG
     Dates: start: 20191204
  14. AVELUMAB [Suspect]
     Active Substance: AVELUMAB
     Dosage: 770 MG
     Dates: start: 20200305, end: 20200513
  15. AVELUMAB [Suspect]
     Active Substance: AVELUMAB
     Dosage: 770 MG
     Dates: start: 20200527, end: 20200527

REACTIONS (1)
  - Mixed liver injury [Recovered/Resolved]

NARRATIVE: CASE EVENT DATE: 20200609
